FAERS Safety Report 21712874 (Version 1)
Quarter: 2022Q4

REPORT INFORMATION
  Report Type: Spontaneous
  Country: US (occurrence: None)
  Receive Date: 20221212
  Receipt Date: 20221212
  Transmission Date: 20230113
  Serious: Yes (Other)
  Sender: FDA-Public Use
  Company Number: US-MLMSERVICE-20221125-3943461-1

PATIENT
  Age: 55 Year
  Sex: Female

DRUGS (1)
  1. CALCIUM CARBONATE [Suspect]
     Active Substance: CALCIUM CARBONATE
     Indication: Dyspepsia
     Dosage: UNKNOWN
     Route: 065

REACTIONS (7)
  - Hypercalcaemia [Recovering/Resolving]
  - Disturbance in attention [Recovering/Resolving]
  - Hypokalaemia [Recovering/Resolving]
  - Blood parathyroid hormone decreased [Recovering/Resolving]
  - Metabolic alkalosis [Recovering/Resolving]
  - Temperature intolerance [Recovering/Resolving]
  - Haemoglobin decreased [Recovering/Resolving]
